FAERS Safety Report 19739497 (Version 1)
Quarter: 2021Q3

REPORT INFORMATION
  Report Type: Spontaneous
  Country: GB (occurrence: GB)
  Receive Date: 20210823
  Receipt Date: 20210823
  Transmission Date: 20211014
  Serious: Yes (Other)
  Sender: FDA-Public Use
  Company Number: GB-TAKEDA-2021TUS052266

PATIENT
  Sex: Male

DRUGS (1)
  1. ENTYVIO [Suspect]
     Active Substance: VEDOLIZUMAB
     Indication: INFLAMMATORY BOWEL DISEASE
     Dosage: 300 MILLIGRAM
     Route: 042

REACTIONS (3)
  - Inflammatory bowel disease [Recovered/Resolved]
  - Condition aggravated [Recovered/Resolved]
  - Treatment noncompliance [Recovered/Resolved]
